FAERS Safety Report 23330244 (Version 3)
Quarter: 2024Q1

REPORT INFORMATION
  Report Type: Spontaneous
  Country: DE (occurrence: DE)
  Receive Date: 20231222
  Receipt Date: 20240123
  Transmission Date: 20240410
  Serious: Yes (Other)
  Sender: FDA-Public Use
  Company Number: DE-CELLTRION INC.-2023DE024277

PATIENT

DRUGS (6)
  1. INFLIXIMAB [Suspect]
     Active Substance: INFLIXIMAB
     Indication: Crohn^s disease
     Dosage: HAS BEEN RECEIVING REMSIMA FOR 1/2 YEAR WITH A VERY GOOD RESPONSE AND IS IN REMISSION
     Route: 042
  2. INFLIXIMAB [Suspect]
     Active Substance: INFLIXIMAB
     Dosage: 250 MG (5MG PER KG)/INDUCTION: 02.06.23
     Route: 042
     Dates: start: 20230602
  3. INFLIXIMAB [Suspect]
     Active Substance: INFLIXIMAB
     Dosage: 250 MG (5MG PER KG)
     Route: 042
     Dates: start: 20230707
  4. INFLIXIMAB [Suspect]
     Active Substance: INFLIXIMAB
     Dosage: 250 MG (5MG PER KG)
     Route: 042
     Dates: start: 20230808
  5. INFLIXIMAB [Suspect]
     Active Substance: INFLIXIMAB
     Dosage: 250 MG (5MG PER KG)/INFUSION OVER 2H
     Route: 042
     Dates: start: 20230927
  6. CHOLECALCIFEROL [Concomitant]
     Active Substance: CHOLECALCIFEROL
     Dosage: 1000 IE EVERY DAY: CONCOMITANT LONG TERM MEDICATION

REACTIONS (2)
  - Visual acuity reduced [Not Recovered/Not Resolved]
  - Underdose [Unknown]

NARRATIVE: CASE EVENT DATE: 20230602
